FAERS Safety Report 9591155 (Version 1)
Quarter: 2013Q4

REPORT INFORMATION
  Report Type: Spontaneous
  Country: US (occurrence: US)
  Receive Date: 20131003
  Receipt Date: 20131003
  Transmission Date: 20140711
  Serious: No
  Sender: FDA-Public Use
  Company Number: US-AMGEN-USASP2012070826

PATIENT
  Sex: Female
  Weight: 59.86 kg

DRUGS (7)
  1. ENBREL [Suspect]
     Indication: RHEUMATOID ARTHRITIS
     Dosage: 50 MG, QWK
     Route: 058
  2. TYLENOL PM [Concomitant]
     Dosage: 25-500 MG
  3. VICODIN [Concomitant]
     Dosage: 5-500 MG
  4. TENORMIN [Concomitant]
     Dosage: 25 MG, UNK
  5. POTASSIUM [Concomitant]
     Dosage: 75 MG, UNK
  6. PREDNISONE [Concomitant]
     Dosage: 1 MG, UNK
  7. SIMVASTATIN [Concomitant]
     Dosage: 5 MG, UNK

REACTIONS (2)
  - Influenza like illness [Unknown]
  - Pyrexia [Unknown]
